FAERS Safety Report 16148493 (Version 2)
Quarter: 2019Q2

REPORT INFORMATION
  Report Type: Spontaneous
  Country: GB (occurrence: GB)
  Receive Date: 20190402
  Receipt Date: 20190624
  Transmission Date: 20190711
  Serious: Yes (Hospitalization, Other)
  Sender: FDA-Public Use
  Company Number: PHHY2018GB144055

PATIENT
  Age: 62 Year
  Sex: Female

DRUGS (71)
  1. COCODAMOL [Concomitant]
     Active Substance: ACETAMINOPHEN\CODEINE PHOSPHATE
     Indication: PRODUCT USED FOR UNKNOWN INDICATION
     Dosage: 1 DF, UNK (30/500 MG FORM STRENGTH)
     Route: 065
     Dates: start: 20030104, end: 20180225
  2. PIRITON [Concomitant]
     Active Substance: CHLORPHENIRAMINE MALEATE
     Indication: PRODUCT USED FOR UNKNOWN INDICATION
     Dosage: 4 MG, UNK
     Route: 048
  3. HYDROXOCOBALAMIN [Concomitant]
     Active Substance: HYDROXOCOBALAMIN
     Indication: PRODUCT USED FOR UNKNOWN INDICATION
     Dosage: 1 MG, UNK (1 MG/1 ML)
     Route: 030
  4. METOCLOPRAMIDE. [Concomitant]
     Active Substance: METOCLOPRAMIDE
     Indication: PRODUCT USED FOR UNKNOWN INDICATION
     Dosage: 10 MG, UNK (TAKEN PRIOR TO STUDY)
     Route: 048
  5. CLOTRIMAZOLE. [Concomitant]
     Active Substance: CLOTRIMAZOLE
     Dosage: UNK
     Route: 061
  6. TRANEXAMIC ACID. [Concomitant]
     Active Substance: TRANEXAMIC ACID
     Indication: PRODUCT USED FOR UNKNOWN INDICATION
     Dosage: UNK
     Route: 065
  7. SILVER NITRATE. [Concomitant]
     Active Substance: SILVER NITRATE
     Dosage: UNK
     Route: 061
     Dates: start: 20190522, end: 20190522
  8. GENTAMYCIN [Concomitant]
     Active Substance: GENTAMICIN
     Dosage: 400 MG, UNK
     Route: 042
     Dates: start: 20190528, end: 20190528
  9. FEXOFENADINE [Concomitant]
     Active Substance: FEXOFENADINE\FEXOFENADINE HYDROCHLORIDE
     Indication: PRURITUS
     Dosage: 180 MG, UNK
     Route: 048
     Dates: start: 20190403
  10. FEXOFENADINE [Concomitant]
     Active Substance: FEXOFENADINE\FEXOFENADINE HYDROCHLORIDE
     Indication: SKIN ABRASION
     Dosage: UNK
     Route: 065
  11. RANITIDINE. [Concomitant]
     Active Substance: RANITIDINE
     Indication: PRODUCT USED FOR UNKNOWN INDICATION
     Dosage: 50 MG, UNK (TAKEN PRIOR TO STUDY)
     Route: 042
  12. BENDROFLUMETHIAZIDE [Concomitant]
     Active Substance: BENDROFLUMETHIAZIDE
     Indication: PRODUCT USED FOR UNKNOWN INDICATION
     Dosage: 2.5 MG, QD
     Route: 048
     Dates: start: 20030114
  13. METRONIDAZOLE. [Concomitant]
     Active Substance: METRONIDAZOLE
     Indication: SEPSIS
     Dosage: 400 MG, UNK
     Route: 065
  14. PARACETAMOL [Concomitant]
     Active Substance: ACETAMINOPHEN
     Indication: OEDEMA
     Dosage: 1 G, UNK
     Route: 048
  15. CHLORHEXIDINE [Concomitant]
     Active Substance: CHLORHEXIDINE
     Indication: PRODUCT USED FOR UNKNOWN INDICATION
     Dosage: 10 ML, UNK
     Route: 065
  16. TEICOPLANIN [Concomitant]
     Active Substance: TEICOPLANIN
     Indication: PRODUCT USED FOR UNKNOWN INDICATION
     Dosage: 400 MG, UNK
     Route: 065
  17. DUODERM [Concomitant]
     Indication: PRODUCT USED FOR UNKNOWN INDICATION
     Route: 065
  18. SALINE [Concomitant]
     Active Substance: SODIUM CHLORIDE
     Indication: GASTROINTESTINAL HAEMORRHAGE
     Dosage: 500 ML, UNK
     Route: 042
     Dates: start: 20190522, end: 20190522
  19. PENTASA [Concomitant]
     Active Substance: MESALAMINE
     Dosage: 4 G, QD
     Route: 048
     Dates: start: 20180730
  20. ZEROBASE [Concomitant]
     Active Substance: MINERAL OIL\PARAFFIN
     Indication: DRY SKIN
     Dosage: UNK
     Route: 061
  21. METRONIDAZOLE. [Concomitant]
     Active Substance: METRONIDAZOLE
     Dosage: 1500 MG, QD
     Route: 042
     Dates: start: 20181119, end: 20181124
  22. PARACETAMOL [Concomitant]
     Active Substance: ACETAMINOPHEN
     Dosage: 1 G, UNK
     Route: 048
     Dates: start: 20180225, end: 20180301
  23. CHIROCAINE [Concomitant]
     Active Substance: LEVOBUPIVACAINE HYDROCHLORIDE
     Indication: PRODUCT USED FOR UNKNOWN INDICATION
     Route: 065
  24. RED BLOOD CELLS [Concomitant]
     Active Substance: HUMAN RED BLOOD CELL
     Indication: HAEMORRHAGE
     Dosage: UNK
     Route: 042
     Dates: start: 20190511, end: 20190511
  25. FEMARA [Suspect]
     Active Substance: LETROZOLE
     Dosage: 2.5 MG, QD
     Route: 048
     Dates: start: 20180525, end: 20181011
  26. DEXAMETHASONE. [Concomitant]
     Active Substance: DEXAMETHASONE
     Indication: PRODUCT USED FOR UNKNOWN INDICATION
     Dosage: 8 MG, UNK (TAKEN PRIOR TO STUDY)
     Route: 042
  27. OMEPRAZOLE. [Concomitant]
     Active Substance: OMEPRAZOLE
     Indication: PRODUCT USED FOR UNKNOWN INDICATION
     Dosage: 20 MG, QD
     Route: 048
     Dates: start: 20091014
  28. PENTASA [Concomitant]
     Active Substance: MESALAMINE
     Indication: CROHN^S DISEASE
     Dosage: 1 OT, QD
     Route: 048
     Dates: start: 20131217, end: 20180730
  29. DOXAZOSIN [Concomitant]
     Active Substance: DOXAZOSIN\DOXAZOSIN MESYLATE
     Indication: PRODUCT USED FOR UNKNOWN INDICATION
     Dosage: 2 MG, QD
     Route: 048
     Dates: start: 20040816
  30. CHLORPHENAMINE [Concomitant]
     Active Substance: CHLORPHENIRAMINE MALEATE
     Indication: PRODUCT USED FOR UNKNOWN INDICATION
     Dosage: 10 MG, UNK (TAKEN PRIOR TO STUDY)
     Route: 042
  31. VANCOMYCIN [Concomitant]
     Active Substance: VANCOMYCIN
     Dosage: 2000 MG, UNK
     Route: 042
     Dates: start: 20190526, end: 20190526
  32. TEICOPLANIN [Concomitant]
     Active Substance: TEICOPLANIN
     Dosage: 400 MG, UNK
     Route: 065
     Dates: start: 20181220, end: 20181224
  33. DOXYCYCLINE. [Concomitant]
     Active Substance: DOXYCYCLINE
     Indication: PRODUCT USED FOR UNKNOWN INDICATION
     Dosage: 200 MG, QD
     Route: 048
     Dates: start: 20181113, end: 20181113
  34. SILVER NITRATE. [Concomitant]
     Active Substance: SILVER NITRATE
     Dosage: UNK
     Route: 061
     Dates: start: 20190510, end: 20190510
  35. TRASTUZUMAB. [Suspect]
     Active Substance: TRASTUZUMAB
     Indication: BREAST CANCER
     Dosage: 600 MG, UNK
     Route: 058
  36. TRASTUZUMAB EMTANSINE [Suspect]
     Active Substance: ADO-TRASTUZUMAB EMTANSINE
     Indication: BREAST CANCER
     Dosage: 420 MG, Q3W
     Route: 042
     Dates: start: 20181019
  37. TAXOL [Suspect]
     Active Substance: PACLITAXEL
     Indication: BREAST CANCER
     Dosage: 156 MG, QW
     Route: 042
     Dates: start: 20180202, end: 20180518
  38. FOLIC ACID. [Concomitant]
     Active Substance: FOLIC ACID
     Indication: PRODUCT USED FOR UNKNOWN INDICATION
     Dosage: 5 MG, QD
     Route: 048
     Dates: start: 20030207
  39. QUININE SULPHATE [Concomitant]
     Active Substance: QUININE SULFATE
     Indication: PRODUCT USED FOR UNKNOWN INDICATION
     Dosage: 200 MG, QD
     Route: 048
     Dates: start: 20040219
  40. COCODAMOL [Concomitant]
     Active Substance: ACETAMINOPHEN\CODEINE PHOSPHATE
     Dosage: 1 UNK, UNK
     Route: 065
  41. PARACETAMOL [Concomitant]
     Active Substance: ACETAMINOPHEN
     Dosage: 1 G, UNK
     Route: 048
     Dates: start: 20180916, end: 20181002
  42. VANCOMYCIN [Concomitant]
     Active Substance: VANCOMYCIN
     Dosage: 2000 MG, UNK
     Route: 042
     Dates: start: 20181119, end: 20181119
  43. EUMOVATE [Concomitant]
     Active Substance: CLOBETASONE BUTYRATE
     Indication: PRURITUS
     Dosage: UNK
     Route: 065
  44. SILVER NITRATE. [Concomitant]
     Active Substance: SILVER NITRATE
     Indication: HAEMORRHAGE
     Dosage: 1 UNIT
     Route: 061
     Dates: start: 20180329, end: 20180329
  45. COCODAMOL [Concomitant]
     Active Substance: ACETAMINOPHEN\CODEINE PHOSPHATE
     Dosage: 1 DF, UNK (1 UG/LITRE)
     Route: 065
  46. ADCAL-D3 [Concomitant]
     Active Substance: CALCIUM CARBONATE\CHOLECALCIFEROL
     Indication: PRODUCT USED FOR UNKNOWN INDICATION
     Dosage: 4 DF, QD
     Route: 048
     Dates: start: 20140127
  47. METRONIDAZOLE. [Concomitant]
     Active Substance: METRONIDAZOLE
     Dosage: 1500 MG, QD
     Route: 042
     Dates: start: 20190526
  48. CYCLIZINE [Concomitant]
     Active Substance: CYCLIZINE
     Indication: PRODUCT USED FOR UNKNOWN INDICATION
     Dosage: 50 MG, UNK
     Route: 048
  49. AQUACEL [Concomitant]
     Active Substance: CARBOXYMETHYLCELLULOSE SODIUM
     Indication: PRODUCT USED FOR UNKNOWN INDICATION
     Route: 065
  50. SANDO K [Concomitant]
     Indication: PRODUCT USED FOR UNKNOWN INDICATION
     Dosage: UNK
     Route: 065
  51. ONDANSETRON [Concomitant]
     Active Substance: ONDANSETRON
     Indication: PRODUCT USED FOR UNKNOWN INDICATION
     Route: 065
  52. SILVER NITRATE. [Concomitant]
     Active Substance: SILVER NITRATE
     Dosage: UNK
     Route: 061
     Dates: start: 20190527, end: 20190527
  53. HEPARIN SODIUM. [Concomitant]
     Active Substance: HEPARIN SODIUM
     Indication: PROPHYLAXIS
     Route: 042
  54. RED BLOOD CELLS [Concomitant]
     Active Substance: HUMAN RED BLOOD CELL
     Indication: GASTROINTESTINAL HAEMORRHAGE
     Dosage: 3 U, UNK (UNIT)
     Route: 042
     Dates: start: 20190523, end: 20190524
  55. TERBUTALINE [Concomitant]
     Active Substance: TERBUTALINE
     Indication: PRODUCT USED FOR UNKNOWN INDICATION
     Dosage: 800 UG, QD
     Route: 055
     Dates: start: 20030108
  56. FLUCONAZOLE. [Concomitant]
     Active Substance: FLUCONAZOLE
     Indication: PRODUCT USED FOR UNKNOWN INDICATION
     Dosage: 100 MG, QD
     Route: 048
     Dates: start: 20180125
  57. CETRIZINE [Concomitant]
     Active Substance: CETIRIZINE HYDROCHLORIDE
     Indication: PRODUCT USED FOR UNKNOWN INDICATION
     Dosage: 10 UG, UNK
     Route: 048
  58. VANCOMYCIN [Concomitant]
     Active Substance: VANCOMYCIN
     Indication: SEPSIS
     Dosage: 2000 MG, UNK
     Route: 042
  59. FEMARA [Suspect]
     Active Substance: LETROZOLE
     Indication: BREAST CANCER
     Dosage: 2.5 MG, QD
     Route: 048
     Dates: start: 20180119, end: 20180126
  60. AMLODIPINE [Concomitant]
     Active Substance: AMLODIPINE BESYLATE
     Indication: PRODUCT USED FOR UNKNOWN INDICATION
     Dosage: 10 MG, QD (TAKEN PRIOR TO STUDY)
     Route: 048
     Dates: start: 20180301
  61. BENZYDAMINE [Concomitant]
     Active Substance: BENZYDAMINE
     Indication: PRODUCT USED FOR UNKNOWN INDICATION
     Dosage: 5 ML, UNK (MOUTHWASH)
     Route: 065
  62. CLOTRIMAZOLE. [Concomitant]
     Active Substance: CLOTRIMAZOLE
     Indication: PRODUCT USED FOR UNKNOWN INDICATION
     Dosage: UNK
     Route: 061
  63. METRONIDAZOLE. [Concomitant]
     Active Substance: METRONIDAZOLE
     Dosage: 400 MG, UNK
     Route: 065
     Dates: start: 20181122, end: 20181123
  64. VANCOMYCIN [Concomitant]
     Active Substance: VANCOMYCIN
     Dosage: 1000 MG, QD
     Route: 042
     Dates: start: 20190527
  65. ZOLEDRONIC ACID [Concomitant]
     Active Substance: ZOLEDRONIC ACID
     Indication: METASTASES TO BONE
     Dosage: UNK
     Route: 065
  66. ONDANSETRON [Concomitant]
     Active Substance: ONDANSETRON
  67. COLECALCIFEROL [Concomitant]
     Active Substance: CHOLECALCIFEROL
     Indication: PRODUCT USED FOR UNKNOWN INDICATION
     Dosage: 4 DF, QD
     Route: 048
     Dates: start: 20180920
  68. EUMOVATE [Concomitant]
     Active Substance: CLOBETASONE BUTYRATE
     Indication: SKIN ABRASION
     Dosage: 2 OT, QD
     Route: 061
     Dates: start: 20190403
  69. GENTAMYCIN [Concomitant]
     Active Substance: GENTAMICIN
     Indication: SEPSIS
     Dosage: 400 MG, UNK
     Route: 042
     Dates: start: 20190526, end: 20190526
  70. GLUCOSE [Concomitant]
     Active Substance: DEXTROSE
     Indication: GASTROINTESTINAL HAEMORRHAGE
     Dosage: 500 ML, UNK (0.18NA CL 4% GLUCOSE)
     Route: 042
     Dates: start: 20190523, end: 20190523
  71. GLUCOSE [Concomitant]
     Active Substance: DEXTROSE
     Indication: GASTROINTESTINAL HAEMORRHAGE
     Dosage: 1000 ML, UNK (0.18% NACL 4% GLUCOSE + 20MML KCL)
     Route: 042
     Dates: start: 20190525, end: 20190525

REACTIONS (10)
  - Diarrhoea [Recovered/Resolved]
  - Oedema [Recovered/Resolved]
  - Bone pain [Recovered/Resolved]
  - Vomiting [Recovered/Resolved]
  - Disease progression [Unknown]
  - Pain in extremity [Unknown]
  - Wound [Recovered/Resolved]
  - Mucosal inflammation [Recovered/Resolved]
  - Arthralgia [Not Recovered/Not Resolved]
  - C-reactive protein increased [Recovered/Resolved]

NARRATIVE: CASE EVENT DATE: 20180225
